FAERS Safety Report 25983758 (Version 1)
Quarter: 2025Q4

REPORT INFORMATION
  Report Type: Report from Study
  Country: UY (occurrence: UY)
  Receive Date: 20251031
  Receipt Date: 20251031
  Transmission Date: 20260118
  Serious: Yes (Other)
  Sender: ABBVIE
  Company Number: UY-ABBVIE-6522969

PATIENT
  Age: 56 Year
  Sex: Female

DRUGS (1)
  1. RINVOQ [Suspect]
     Active Substance: UPADACITINIB
     Indication: Rheumatoid arthritis
     Dosage: 15MG X 30 TABLETS.
     Route: 048
     Dates: start: 20231109, end: 20250610

REACTIONS (3)
  - Cervix carcinoma [Unknown]
  - Micturition urgency [Unknown]
  - Vaginal cancer [Unknown]

NARRATIVE: CASE EVENT DATE: 20250601
